FAERS Safety Report 9109583 (Version 1)
Quarter: 2013Q1

REPORT INFORMATION
  Report Type: Spontaneous
  Country: US (occurrence: US)
  Receive Date: 20130222
  Receipt Date: 20130222
  Transmission Date: 20140127
  Serious: Yes (Hospitalization)
  Sender: FDA-Public Use
  Company Number: US-TEVA-352993USA

PATIENT
  Age: 44 Year
  Sex: Male
  Weight: 93.52 kg

DRUGS (2)
  1. TREANDA [Suspect]
     Indication: CHRONIC LYMPHOCYTIC LEUKAEMIA
     Dosage: 200 MG EVERY MONTH
     Route: 042
     Dates: start: 20120531
  2. RITUXIMAB [Concomitant]
     Dates: start: 20120531

REACTIONS (1)
  - Pyrexia [Recovered/Resolved]
